FAERS Safety Report 7215540-X (Version None)
Quarter: 2011Q1

REPORT INFORMATION
  Report Type: 
  Country: None (occurrence: None)
  Receive Date: 20110107
  Receipt Date: 20101227
  Transmission Date: 20110831
  Serious: Yes (Hospitalization, Other)
  Sender: FDA-Public Use
  Company Number: DE-ROCHE-734980

PATIENT
  Sex: Male
  Weight: 70 kg

DRUGS (1)
  1. XELODA [Suspect]
     Route: 048
     Dates: start: 20100914, end: 20100924

REACTIONS (11)
  - LEUKOPENIA [None]
  - THROMBOCYTOPENIA [None]
  - PLEURISY [None]
  - PALMAR-PLANTAR ERYTHRODYSAESTHESIA SYNDROME [None]
  - COAGULOPATHY [None]
  - VOMITING [None]
  - DIARRHOEA [None]
  - RED BLOOD CELL COUNT DECREASED [None]
  - POLYNEUROPATHY [None]
  - SOMNOLENCE [None]
  - IMMUNODEFICIENCY [None]
